FAERS Safety Report 9924786 (Version 1)
Quarter: 2014Q1

REPORT INFORMATION
  Report Type: Spontaneous
  Country: US (occurrence: None)
  Receive Date: 20140221
  Receipt Date: 20140221
  Transmission Date: 20141002
  Serious: Yes (Other)
  Sender: FDA-Public Use
  Company Number: 2014P1001371

PATIENT
  Age: 51 Year
  Sex: Male

DRUGS (5)
  1. LITHIUM [Suspect]
  2. IBUPROFEN [Suspect]
     Indication: PROCEDURAL PAIN
  3. VALPROATE [Concomitant]
  4. QUETIAPINE [Concomitant]
  5. RISPERIDONE [Concomitant]

REACTIONS (8)
  - Toxicity to various agents [None]
  - Dysarthria [None]
  - Gait disturbance [None]
  - Diarrhoea [None]
  - Antipsychotic drug level above therapeutic [None]
  - Renal failure [None]
  - Mental status changes [None]
  - Metabolic encephalopathy [None]
